FAERS Safety Report 14300063 (Version 1)
Quarter: 2017Q4

REPORT INFORMATION
  Report Type: Spontaneous
  Country: US (occurrence: US)
  Receive Date: 20171219
  Receipt Date: 20171219
  Transmission Date: 20180321
  Serious: Yes (Hospitalization)
  Sender: FDA-Public Use
  Company Number: US-HETERO CORPORATE-HET2017US00406

PATIENT
  Age: 70 Year
  Sex: Female

DRUGS (12)
  1. LITHIUM. [Suspect]
     Active Substance: LITHIUM
     Dosage: 450 MG, QD AT BED TIME
     Dates: start: 20161115
  2. VALPROIC ACID. [Concomitant]
     Active Substance: VALPROIC ACID
     Dosage: UNK
     Route: 065
  3. DIVALPROEX SODIUM. [Concomitant]
     Active Substance: DIVALPROEX SODIUM
     Indication: PRODUCT USED FOR UNKNOWN INDICATION
     Dosage: UNK
     Route: 065
  4. LEVOTHYROXINE SODIUM. [Concomitant]
     Active Substance: LEVOTHYROXINE SODIUM
     Indication: HYPOTHYROIDISM
     Dosage: UNK
     Route: 065
  5. LITHIUM. [Suspect]
     Active Substance: LITHIUM
     Indication: SCHIZOAFFECTIVE DISORDER
     Dosage: 300 MG, BID
     Route: 065
     Dates: start: 20161108
  6. RISPERIDONE. [Concomitant]
     Active Substance: RISPERIDONE
     Indication: SCHIZOAFFECTIVE DISORDER
     Dosage: 3.5 MG, BID
  7. RISPERIDONE. [Concomitant]
     Active Substance: RISPERIDONE
     Dosage: 3 MG, BID
  8. AMANTADINE. [Concomitant]
     Active Substance: AMANTADINE HYDROCHLORIDE
     Indication: PRODUCT USED FOR UNKNOWN INDICATION
     Dosage: UNK
     Route: 065
  9. ASPIRIN 81 [Concomitant]
     Active Substance: ASPIRIN
     Indication: PRODUCT USED FOR UNKNOWN INDICATION
     Dosage: UNK
     Route: 065
  10. LITHIUM. [Suspect]
     Active Substance: LITHIUM
     Dosage: 300 MG, TID
     Route: 065
     Dates: start: 20161111
  11. GABAPENTIN. [Concomitant]
     Active Substance: GABAPENTIN
     Indication: NEUROPATHY PERIPHERAL
     Dosage: UNK
     Route: 065
  12. AMLODIPINE BESYLATE. [Concomitant]
     Active Substance: AMLODIPINE BESYLATE
     Indication: HYPERTENSION
     Dosage: UNK
     Route: 065

REACTIONS (3)
  - Toxicity to various agents [Unknown]
  - Aphasia [Recovering/Resolving]
  - Hypernatraemia [Unknown]

NARRATIVE: CASE EVENT DATE: 201611
